FAERS Safety Report 8375991-7 (Version None)
Quarter: 2012Q2

REPORT INFORMATION
  Report Type: 
  Country: None (occurrence: None)
  Receive Date: 20120517
  Receipt Date: 20030909
  Transmission Date: 20120825
  Serious: Yes (Other)
  Sender: FDA-Public Use
  Company Number: 217369

PATIENT

DRUGS (2)
  1. PARAFFIN, LIQUID, EMULSIFYING WAX, WHITE SOFT PARAFFIN(AQUEOUS/0066280 [Concomitant]
  2. CALCIPOTRIENE AND BETAMETHASONE DIPROPIONATE [Suspect]
     Indication: PSORIASIS
     Dosage: 1 DF (1 IN 1 D), TOPICAL
     Route: 061

REACTIONS (2)
  - REBOUND PSORIASIS [None]
  - WITHDRAWAL SYNDROME [None]
